FAERS Safety Report 17735267 (Version 1)
Quarter: 2020Q2

REPORT INFORMATION
  Report Type: Report from Study
  Country: BR (occurrence: BR)
  Receive Date: 20200501
  Receipt Date: 20200501
  Transmission Date: 20200714
  Serious: Yes (Death, Other)
  Sender: FDA-Public Use
  Company Number: PHHY2016BR022926

PATIENT
  Age: 67 Year
  Sex: Male
  Weight: 70 kg

DRUGS (7)
  1. GILENYA [Suspect]
     Active Substance: FINGOLIMOD HYDROCHLORIDE
     Dosage: UNK
     Route: 048
  2. RIVOTRIL [Concomitant]
     Active Substance: CLONAZEPAM
     Indication: INSOMNIA
     Dosage: 7 DRP, QHS
     Route: 048
  3. EXODUS//ESCITALOPRAM OXALATE [Concomitant]
     Active Substance: ESCITALOPRAM OXALATE
     Indication: DEPRESSION
     Dosage: 1 DF, QD
     Route: 048
  4. LEVOTHYROXINE. [Concomitant]
     Active Substance: LEVOTHYROXINE
     Indication: THYROID DISORDER
     Dosage: 1 DF, QD
     Route: 048
  5. GILENYA [Suspect]
     Active Substance: FINGOLIMOD HYDROCHLORIDE
     Indication: MULTIPLE SCLEROSIS
     Dosage: 0.5 MG, QD
     Route: 048
     Dates: start: 201401
  6. BACLOFEN. [Concomitant]
     Active Substance: BACLOFEN
     Indication: HYPOTONIA
     Dosage: 1 DF, QD
     Route: 048
  7. GILENYA [Suspect]
     Active Substance: FINGOLIMOD HYDROCHLORIDE
     Dosage: UNK
     Route: 048
     Dates: start: 20190307

REACTIONS (19)
  - Death [Fatal]
  - Hand deformity [Recovering/Resolving]
  - Motor dysfunction [Unknown]
  - Eye movement disorder [Unknown]
  - Lacrimation increased [Not Recovered/Not Resolved]
  - Pyrexia [Unknown]
  - Productive cough [Recovering/Resolving]
  - Speech disorder [Recovered/Resolved]
  - Dysstasia [Not Recovered/Not Resolved]
  - Tremor [Recovered/Resolved]
  - Hypokinesia [Unknown]
  - Pneumonia [Recovering/Resolving]
  - Speech disorder [Unknown]
  - Pharyngitis [Unknown]
  - Hypokinesia [Recovered/Resolved]
  - Fatigue [Recovering/Resolving]
  - Tremor [Unknown]
  - Weight decreased [Recovering/Resolving]
  - Visual impairment [Unknown]

NARRATIVE: CASE EVENT DATE: 20190522
